FAERS Safety Report 8906842 (Version 1)
Quarter: 2012Q4

REPORT INFORMATION
  Report Type: 
  Country: US (occurrence: US)
  Receive Date: 20121114
  Receipt Date: 20121114
  Transmission Date: 20130627
  Serious: Yes (Hospitalization)
  Sender: FDA-Public Use
  Company Number: US-BAYER-2012-116615

PATIENT
  Age: 16 Year

DRUGS (3)
  1. YAZ [Suspect]
     Indication: ACNE
  2. YASMIN [Suspect]
  3. ADVIL [Concomitant]
     Indication: PAIN
     Dosage: UNK UNK, PRN

REACTIONS (2)
  - Pelvic venous thrombosis [None]
  - Pulmonary embolism [None]
